FAERS Safety Report 17963451 (Version 6)
Quarter: 2020Q3

REPORT INFORMATION
  Report Type: Spontaneous
  Country: US (occurrence: US)
  Receive Date: 20200630
  Receipt Date: 20200914
  Transmission Date: 20201103
  Serious: No
  Sender: FDA-Public Use
  Company Number: US-JNJFOC-20200633984

PATIENT
  Age: 69 Year
  Sex: Male

DRUGS (11)
  1. STELARA [Suspect]
     Active Substance: USTEKINUMAB
     Indication: CROHN^S DISEASE
     Route: 058
     Dates: start: 20191118
  2. CANDESARTAN. [Concomitant]
     Active Substance: CANDESARTAN
  3. TIMOLOL. [Concomitant]
     Active Substance: TIMOLOL
  4. ROSUVASTATIN. [Concomitant]
     Active Substance: ROSUVASTATIN
  5. CARVEDILOL. [Concomitant]
     Active Substance: CARVEDILOL
  6. MONTELUKAST [Concomitant]
     Active Substance: MONTELUKAST SODIUM
  7. BREO ELLIPTA [Concomitant]
     Active Substance: FLUTICASONE FUROATE\VILANTEROL TRIFENATATE
  8. DORZOLAMIDE [Concomitant]
     Active Substance: DORZOLAMIDE
  9. STELARA [Suspect]
     Active Substance: USTEKINUMAB
  10. VENTOLINE                          /00139501/ [Concomitant]
     Active Substance: ALBUTEROL
  11. HYDROCHLOROTHIAZIDE. [Concomitant]
     Active Substance: HYDROCHLOROTHIAZIDE

REACTIONS (4)
  - Device malfunction [Unknown]
  - Accidental exposure to product [Unknown]
  - Underdose [Unknown]
  - Inappropriate schedule of product administration [Unknown]

NARRATIVE: CASE EVENT DATE: 20200623
